FAERS Safety Report 8363093-5 (Version None)
Quarter: 2012Q2

REPORT INFORMATION
  Report Type: 
  Country: None (occurrence: None)
  Receive Date: 20120516
  Receipt Date: 20120510
  Transmission Date: 20120825
  Serious: Yes (Hospitalization, Other)
  Sender: FDA-Public Use
  Company Number: US-PFIZER INC-2011310055

PATIENT
  Sex: Male

DRUGS (2)
  1. CHANTIX [Suspect]
     Indication: SMOKING CESSATION THERAPY
     Dosage: 1 MG, MONTH PACK CONTINUING PACK WITH REFILLS
     Route: 048
     Dates: start: 20080321, end: 20080801
  2. ALBUTEROL [Concomitant]
     Indication: ASTHMA
     Dosage: UNK
     Dates: start: 20040101

REACTIONS (4)
  - DEPRESSION [None]
  - ANXIETY [None]
  - AGGRESSION [None]
  - SUICIDAL IDEATION [None]
